FAERS Safety Report 19613630 (Version 1)
Quarter: 2021Q3

REPORT INFORMATION
  Report Type: Spontaneous
  Country: US (occurrence: US)
  Receive Date: 20210726
  Receipt Date: 20210726
  Transmission Date: 20211014
  Serious: No
  Sender: FDA-Public Use
  Company Number: None

PATIENT
  Age: 80 Year
  Sex: Female

DRUGS (17)
  1. ASPIRIN 81 MG [Concomitant]
     Active Substance: ASPIRIN
  2. GLUCOTROL 10MG [Concomitant]
  3. ZOCOR [Concomitant]
     Active Substance: SIMVASTATIN
  4. DEXAMETHASONE 4MG [Concomitant]
     Active Substance: DEXAMETHASONE
  5. METFORMIN [Concomitant]
     Active Substance: METFORMIN HYDROCHLORIDE
  6. PROMETHAZINE 12.5MG [Concomitant]
  7. VITAMIN B 12 SHOT [Concomitant]
  8. ALECENSA [Suspect]
     Active Substance: ALECTINIB HYDROCHLORIDE
     Indication: LUNG NEOPLASM MALIGNANT
     Dosage: ?          OTHER DOSE:4 CAPSULES;?
     Route: 048
     Dates: start: 20210707
  9. PERCOCET [Concomitant]
     Active Substance: ACETAMINOPHEN\OXYCODONE HYDROCHLORIDE
  10. FUROSEMIDE 40MG [Concomitant]
     Active Substance: FUROSEMIDE
  11. CLOPIDOGREL [Concomitant]
     Active Substance: CLOPIDOGREL BISULFATE
  12. METOPROLOL ER SUCCINATE 100MG [Concomitant]
  13. CIMETIDINE 200MG [Concomitant]
  14. FOLIC ACID 1MG [Concomitant]
     Active Substance: FOLIC ACID
  15. DIPHENOXYLATE/ATROPINE 2.5MG [Concomitant]
  16. LEVOTHYROXINE 75MCG [Concomitant]
     Active Substance: LEVOTHYROXINE
  17. MONTELUKAST [Concomitant]
     Active Substance: MONTELUKAST SODIUM

REACTIONS (5)
  - Peripheral swelling [None]
  - Dry mouth [None]
  - Cough [None]
  - Fatigue [None]
  - Dizziness [None]

NARRATIVE: CASE EVENT DATE: 20210707
